FAERS Safety Report 21062866 (Version 4)
Quarter: 2022Q4

REPORT INFORMATION
  Report Type: Report from Study
  Country: ZA (occurrence: ZA)
  Receive Date: 20220711
  Receipt Date: 20221005
  Transmission Date: 20230113
  Serious: Yes (Hospitalization, Other)
  Sender: FDA-Public Use
  Company Number: ZA-NOVOPROD-933892

PATIENT
  Age: 66 Year
  Sex: Female

DRUGS (5)
  1. INSULIN ASPART [Suspect]
     Active Substance: INSULIN ASPART
     Dosage: 10 IU, BID (BD + NTD)
  2. INSULIN ASPART [Suspect]
     Active Substance: INSULIN ASPART
     Dosage: 20 IU, QD (BD: 15.0 + SD: 5.0 IU)
  3. INSULIN ASPART [Suspect]
     Active Substance: INSULIN ASPART
     Indication: Type 2 diabetes mellitus
     Dosage: 22 IU, QD(BREAKFAST DOSE: 10.0 + SUPPER DOSE: 12.0 IU)
     Dates: start: 202202
  4. INSULIN ASPART [Suspect]
     Active Substance: INSULIN ASPART
     Dosage: 24 IU, QD (BD: 17.0 + SD: 7.0 IU)
  5. METFORMIN [Concomitant]
     Active Substance: METFORMIN HYDROCHLORIDE
     Dosage: UNK

REACTIONS (14)
  - Hypoglycaemic unconsciousness [Not Recovered/Not Resolved]
  - Swelling [Not Recovered/Not Resolved]
  - Diarrhoea [Not Recovered/Not Resolved]
  - Weight increased [Not Recovered/Not Resolved]
  - Hypoglycaemia [Not Recovered/Not Resolved]
  - Blood glucose decreased [Not Recovered/Not Resolved]
  - Vision blurred [Not Recovered/Not Resolved]
  - Blood glucose increased [Unknown]
  - Constipation [Not Recovered/Not Resolved]
  - Oedema blister [Not Recovered/Not Resolved]
  - Musculoskeletal stiffness [Not Recovered/Not Resolved]
  - Cardiac disorder [Unknown]
  - Blood cholesterol abnormal [Unknown]
  - Fluid retention [Unknown]
